FAERS Safety Report 10419381 (Version 1)
Quarter: 2014Q2

REPORT INFORMATION
  Report Type: Spontaneous
  Country: US (occurrence: None)
  Receive Date: 20140627
  Receipt Date: 20140627
  Transmission Date: 20141212
  Serious: Yes (Other)
  Sender: FDA-Public Use
  Company Number: PHEH2013US019307

PATIENT
  Age: 56 Year
  Sex: Female

DRUGS (1)
  1. DIOVAN HCT [Suspect]
     Dosage: VALS HCT
     Dates: start: 201301

REACTIONS (3)
  - Blood pressure increased [None]
  - Abdominal discomfort [None]
  - Dizziness [None]
